FAERS Safety Report 9342883 (Version 1)
Quarter: 2013Q2

REPORT INFORMATION
  Report Type: Spontaneous
  Country: FR (occurrence: FR)
  Receive Date: 20130611
  Receipt Date: 20130611
  Transmission Date: 20140414
  Serious: Yes (Hospitalization)
  Sender: FDA-Public Use
  Company Number: FR-GLAXOSMITHKLINE-B0896595A

PATIENT
  Age: 70 Year
  Sex: Female

DRUGS (5)
  1. LAMICTAL [Suspect]
     Indication: MANIA
     Dosage: 25MG PER DAY
     Route: 048
     Dates: start: 20120606, end: 20120613
  2. DEPAMIDE [Suspect]
     Indication: MANIA
     Route: 048
     Dates: start: 20120530, end: 20120606
  3. ZYPREXA [Suspect]
     Indication: MANIA
     Route: 048
     Dates: start: 20120520, end: 20120606
  4. LARGACTIL [Concomitant]
     Indication: MANIA
     Dosage: 25DROP THREE TIMES PER DAY
     Route: 048
     Dates: start: 20130520, end: 20130530
  5. LEVOTHYROX [Concomitant]
     Indication: HYPOTHYROIDISM
     Dosage: 50MCG PER DAY
     Route: 065
     Dates: start: 2001

REACTIONS (2)
  - Mixed liver injury [Recovering/Resolving]
  - Cholelithiasis [Unknown]
